FAERS Safety Report 14092321 (Version 1)
Quarter: 2017Q4

REPORT INFORMATION
  Report Type: Spontaneous
  Country: US (occurrence: US)
  Receive Date: 20171015
  Receipt Date: 20171015
  Transmission Date: 20180321
  Serious: No
  Sender: FDA-Public Use
  Company Number: None

PATIENT
  Age: 47 Year
  Sex: Female
  Weight: 76.5 kg

DRUGS (1)
  1. LAMOTRIGINE. [Suspect]
     Active Substance: LAMOTRIGINE
     Indication: BIPOLAR DISORDER
     Dosage: ?          QUANTITY:60 TABLET(S);?
     Route: 048

REACTIONS (4)
  - Throat irritation [None]
  - Choking [None]
  - Product physical issue [None]
  - Retching [None]

NARRATIVE: CASE EVENT DATE: 20171015
